FAERS Safety Report 12475718 (Version 1)
Quarter: 2016Q2

REPORT INFORMATION
  Report Type: Spontaneous
  Country: CN (occurrence: CN)
  Receive Date: 20160617
  Receipt Date: 20160617
  Transmission Date: 20160815
  Serious: Yes (Other)
  Sender: FDA-Public Use
  Company Number: CN-JNJFOC-20160613873

PATIENT
  Age: 23 Year
  Sex: Female

DRUGS (1)
  1. RISPERDAL [Suspect]
     Active Substance: RISPERIDONE
     Indication: DEPRESSION
     Route: 048
     Dates: start: 2007, end: 2012

REACTIONS (3)
  - Product use issue [Unknown]
  - Off label use [Unknown]
  - Premature menopause [Unknown]

NARRATIVE: CASE EVENT DATE: 2007
